FAERS Safety Report 5156454-9 (Version None)
Quarter: 2006Q4

REPORT INFORMATION
  Report Type: 
  Country: None (occurrence: None)
  Receive Date: 20061113
  Receipt Date: 20061102
  Transmission Date: 20070319
  Serious: Yes (Death)
  Sender: FDA-Public Use
  Company Number: 2006135027

PATIENT
  Age: 58 Year
  Sex: Female

DRUGS (1)
  1. VERAPAMIL HYDROCHLORIDE [Suspect]
     Dosage: 2400 MG (240 MG), ORAL
     Route: 048

REACTIONS (1)
  - INCORRECT DOSE ADMINISTERED [None]
